FAERS Safety Report 6022586-6 (Version None)
Quarter: 2008Q4

REPORT INFORMATION
  Report Type: 
  Country: None (occurrence: None)
  Receive Date: 20081230
  Receipt Date: 20081218
  Transmission Date: 20090506
  Serious: Yes (Death, Other)
  Sender: FDA-Public Use
  Company Number: US-BIOGENIDEC-2008BI034271

PATIENT
  Age: 39 Year
  Sex: Male
  Weight: 68 kg

DRUGS (1)
  1. TYSABRI [Suspect]
     Indication: MULTIPLE SCLEROSIS
     Route: 042
     Dates: start: 20080819, end: 20081021

REACTIONS (2)
  - DROWNING [None]
  - ROAD TRAFFIC ACCIDENT [None]
